FAERS Safety Report 19821450 (Version 1)
Quarter: 2021Q3

REPORT INFORMATION
  Report Type: Spontaneous
  Country: GB (occurrence: GB)
  Receive Date: 20210913
  Receipt Date: 20210913
  Transmission Date: 20211014
  Serious: Yes (Disabling, Other)
  Sender: FDA-Public Use
  Company Number: GB-ACCORD-238077

PATIENT
  Age: 81 Year
  Sex: Male
  Weight: 114 kg

DRUGS (4)
  1. AMLODIPINE [Concomitant]
     Active Substance: AMLODIPINE BESYLATE
     Dosage: 1 TABLET ONCE A DAY
     Dates: start: 20210701, end: 20210727
  2. INDAPAMIDE. [Concomitant]
     Active Substance: INDAPAMIDE
     Dosage: 1 TABLET ONCE A DAY.
     Dates: start: 20210719
  3. FUROSEMIDE. [Suspect]
     Active Substance: FUROSEMIDE
     Indication: BUNDLE BRANCH BLOCK RIGHT
     Route: 048
     Dates: start: 20210719, end: 20210724
  4. LOSARTAN. [Concomitant]
     Active Substance: LOSARTAN
     Dosage: 1 TABLET ONCE A DAY
     Dates: start: 20210831

REACTIONS (2)
  - Off label use [Unknown]
  - Blister [Recovered/Resolved]

NARRATIVE: CASE EVENT DATE: 20210819
